FAERS Safety Report 4675429-7 (Version None)
Quarter: 2005Q2

REPORT INFORMATION
  Report Type: 
  Country: None (occurrence: None)
  Receive Date: 20050527
  Receipt Date: 20050303
  Transmission Date: 20051028
  Serious: Yes (Hospitalization)
  Sender: FDA-Public Use
  Company Number: US-BRISTOL-MYERS SQUIBB COMPANY-12885554

PATIENT
  Age: 77 Year
  Sex: Female

DRUGS (9)
  1. ARIPIPRAZOLE [Suspect]
     Indication: DEMENTIA
     Route: 048
     Dates: start: 20040501, end: 20041126
  2. ARIPIPRAZOLE [Suspect]
     Indication: PSYCHOTIC DISORDER
     Route: 048
     Dates: start: 20040501, end: 20041126
  3. ASPIRIN [Concomitant]
  4. NORVASC [Concomitant]
  5. LABETALOL HCL [Concomitant]
  6. DITROPAN [Concomitant]
  7. EFFEXOR [Concomitant]
  8. TYLENOL (CAPLET) [Concomitant]
  9. COLACE [Concomitant]

REACTIONS (2)
  - BLOOD CREATINE PHOSPHOKINASE INCREASED [None]
  - HYPERTENSION [None]
